FAERS Safety Report 14348563 (Version 3)
Quarter: 2018Q1

REPORT INFORMATION
  Report Type: Spontaneous
  Country: US (occurrence: US)
  Receive Date: 20180103
  Receipt Date: 20180214
  Transmission Date: 20180509
  Serious: Yes (Life-Threatening, Disabling, Other)
  Sender: FDA-Public Use
  Company Number: US-ROCHE-2046573

PATIENT
  Age: 54 Year
  Sex: Female
  Weight: 47.67 kg

DRUGS (4)
  1. OCREVUS [Suspect]
     Active Substance: OCRELIZUMAB
     Indication: MULTIPLE SCLEROSIS
     Dosage: ONGOING: YES
     Route: 041
     Dates: start: 20170927
  2. CBD [Concomitant]
     Active Substance: CANNABIDIOL
     Dosage: 2-5 CC, ONCE DAY
     Route: 048
     Dates: start: 20180115
  3. OCREVUS [Suspect]
     Active Substance: OCRELIZUMAB
     Route: 041
     Dates: end: 20171012
  4. AUBAGIO [Suspect]
     Active Substance: TERIFLUNOMIDE
     Indication: MULTIPLE SCLEROSIS
     Dosage: ONGOING: NO
     Route: 048
     Dates: end: 201709

REACTIONS (24)
  - Gait disturbance [Not Recovered/Not Resolved]
  - Musculoskeletal stiffness [Not Recovered/Not Resolved]
  - Hypoaesthesia [Unknown]
  - Micturition urgency [Unknown]
  - Anxiety [Unknown]
  - Gait disturbance [Unknown]
  - Constipation [Unknown]
  - Back pain [Unknown]
  - Joint instability [Not Recovered/Not Resolved]
  - Fall [Unknown]
  - Asthenia [Not Recovered/Not Resolved]
  - Frustration tolerance decreased [Unknown]
  - Joint stiffness [Unknown]
  - Trichorrhexis [Unknown]
  - Insomnia [Unknown]
  - Rib fracture [Not Recovered/Not Resolved]
  - Hair texture abnormal [Unknown]
  - Sexual dysfunction [Unknown]
  - Musculoskeletal pain [Unknown]
  - Pain in extremity [Unknown]
  - Joint stiffness [Not Recovered/Not Resolved]
  - Bladder disorder [Unknown]
  - Arthralgia [Unknown]
  - Coordination abnormal [Unknown]

NARRATIVE: CASE EVENT DATE: 201711
